FAERS Safety Report 5254383-3 (Version None)
Quarter: 2007Q1

REPORT INFORMATION
  Report Type: 
  Country: None (occurrence: None)
  Receive Date: 20070302
  Receipt Date: 20070222
  Transmission Date: 20070707
  Serious: Yes (Other)
  Sender: FDA-Public Use
  Company Number: US-ROCHE-481074

PATIENT
  Age: 57 Year
  Sex: Female
  Weight: 67.6 kg

DRUGS (6)
  1. PEG-INTERFERON A-2A (RO 25-8310) [Suspect]
     Route: 058
     Dates: start: 20061104
  2. RIBAVIRIN [Suspect]
     Route: 048
     Dates: start: 20061104
  3. ZOLOFT [Concomitant]
  4. BENADRYL [Concomitant]
     Dates: start: 20060905
  5. KLONOPIN [Concomitant]
     Dates: start: 20060809
  6. NEXIUM [Concomitant]

REACTIONS (1)
  - FACIAL PALSY [None]
